FAERS Safety Report 11298966 (Version 1)
Quarter: 2015Q3

REPORT INFORMATION
  Report Type: Spontaneous
  Country: US (occurrence: US)
  Receive Date: 20150722
  Receipt Date: 20150722
  Transmission Date: 20151125
  Serious: No
  Sender: FDA-Public Use
  Company Number: US-ELI_LILLY_AND_COMPANY-US201202004166

PATIENT
  Sex: Male
  Weight: 34.9 kg

DRUGS (4)
  1. LEVOTHYROXINE. [Concomitant]
     Active Substance: LEVOTHYROXINE
     Dosage: UNK
  2. HYDROCORTISONE. [Concomitant]
     Active Substance: HYDROCORTISONE
     Dosage: UNK
     Route: 048
  3. HUMATROPE [Suspect]
     Active Substance: SOMATROPIN
     Indication: DWARFISM
     Dosage: 0.9 MG, OTHER
     Route: 058
     Dates: start: 201101
  4. HUMATROPE [Suspect]
     Active Substance: SOMATROPIN
     Dosage: 0.25 MG, OTHER
     Route: 058
     Dates: start: 201106

REACTIONS (1)
  - Underdose [Unknown]
